FAERS Safety Report 9222351 (Version 1)
Quarter: 2013Q2

REPORT INFORMATION
  Report Type: Spontaneous
  Country: DE (occurrence: DE)
  Receive Date: 20130410
  Receipt Date: 20130410
  Transmission Date: 20140414
  Serious: Yes (Hospitalization)
  Sender: FDA-Public Use
  Company Number: DE-JNJFOC-20130317427

PATIENT
  Age: 28 Year
  Sex: Female
  Weight: 62 kg

DRUGS (8)
  1. RISPERDAL [Suspect]
     Indication: PRODUCT USED FOR UNKNOWN INDICATION
     Dosage: (0.5-0-1)=1.5 MG
     Route: 048
     Dates: start: 200806
  2. RISPERDAL [Suspect]
     Indication: PRODUCT USED FOR UNKNOWN INDICATION
     Dosage: (0.5-0-0.75)=1.25 MG
     Route: 048
  3. DOXEPIN [Suspect]
     Indication: PRODUCT USED FOR UNKNOWN INDICATION
     Dosage: (2.5-0-2.5)=5 MG DAILY
     Route: 048
  4. DOXEPIN [Suspect]
     Indication: PRODUCT USED FOR UNKNOWN INDICATION
     Dosage: 5 MG TWICE DAILY
     Route: 048
     Dates: start: 200507
  5. ORFIRIL [Concomitant]
     Dosage: 900 MG TWICE DAILY
     Route: 065
     Dates: start: 200507
  6. VERAPAMIL HYDROCHLORIDE [Concomitant]
     Route: 065
     Dates: start: 200812
  7. PETNIDAN [Concomitant]
     Dosage: 500-0-750
     Route: 065
     Dates: start: 200507
  8. L-THYROXINE (LEVOTHYROXINE-SODIUM) [Concomitant]
     Route: 048
     Dates: start: 201012

REACTIONS (1)
  - Aggression [Unknown]
